FAERS Safety Report 11528666 (Version 1)
Quarter: 2015Q3

REPORT INFORMATION
  Report Type: Spontaneous
  Country: US (occurrence: None)
  Receive Date: 20150918
  Receipt Date: 20150918
  Transmission Date: 20151125
  Serious: Yes (Death)
  Sender: FDA-Public Use
  Company Number: None

PATIENT
  Age: 39 Year
  Sex: Male
  Weight: 81 kg

DRUGS (1)
  1. MIDOSTAURIN [Suspect]
     Active Substance: MIDOSTAURIN
     Indication: MASTOCYTIC LEUKAEMIA
     Dates: start: 20140626, end: 20150706

REACTIONS (7)
  - Mastocytosis [None]
  - Cholestasis [None]
  - Condition aggravated [None]
  - Hyperbilirubinaemia [None]
  - Septic shock [None]
  - Hepatic function abnormal [None]
  - Disease progression [None]

NARRATIVE: CASE EVENT DATE: 20150911
